FAERS Safety Report 12885850 (Version 1)
Quarter: 2016Q4

REPORT INFORMATION
  Report Type: Spontaneous
  Country: US (occurrence: US)
  Receive Date: 20161025
  Receipt Date: 20161025
  Transmission Date: 20170207
  Serious: Yes (Disabling)
  Sender: FDA-Public Use
  Company Number: None

PATIENT
  Age: 80 Year
  Sex: Female
  Weight: 78.75 kg

DRUGS (13)
  1. DILTIAZEM. [Concomitant]
     Active Substance: DILTIAZEM
  2. LASIX [Concomitant]
     Active Substance: FUROSEMIDE
  3. FISH OIL [Concomitant]
     Active Substance: FISH OIL
  4. VITAMIN C [Concomitant]
     Active Substance: ASCORBIC ACID
  5. VITAMIN E [Concomitant]
     Active Substance: .ALPHA.-TOCOPHEROL
  6. COSOPT [Concomitant]
     Active Substance: DORZOLAMIDE HYDROCHLORIDE\TIMOLOL MALEATE
  7. XARELTO [Concomitant]
     Active Substance: RIVAROXABAN
  8. CO-10 [Concomitant]
  9. FLONASE [Concomitant]
     Active Substance: FLUTICASONE PROPIONATE
  10. VITAMIN D [Concomitant]
     Active Substance: CHOLECALCIFEROL
  11. MULTI VITAMIN [Concomitant]
     Active Substance: VITAMINS
  12. LOSARTAN. [Suspect]
     Active Substance: LOSARTAN
     Indication: HYPERTENSION
     Dosage: ?          QUANTITY:90 TABLET(S);?
     Route: 048
     Dates: start: 20151019, end: 20160926
  13. XALATAN [Concomitant]
     Active Substance: LATANOPROST

REACTIONS (3)
  - Blood pressure fluctuation [None]
  - Ocular vascular disorder [None]
  - Blindness unilateral [None]

NARRATIVE: CASE EVENT DATE: 20160906
